FAERS Safety Report 9313430 (Version 2)
Quarter: 2013Q2

REPORT INFORMATION
  Report Type: Spontaneous
  Country: DE (occurrence: DE)
  Receive Date: 20130528
  Receipt Date: 20130619
  Transmission Date: 20140414
  Serious: Yes (Other)
  Sender: FDA-Public Use
  Company Number: GXKR2013DE001917

PATIENT
  Age: 87 Year
  Sex: Male
  Weight: 70 kg

DRUGS (2)
  1. LOVAHEXAL [Suspect]
     Indication: HYPERCHOLESTEROLAEMIA
     Dosage: 20 MG, QD
     Route: 048
  2. CONCOR COR [Concomitant]

REACTIONS (5)
  - Haematoma [Recovering/Resolving]
  - Muscle spasms [Recovering/Resolving]
  - Myalgia [Recovering/Resolving]
  - Tremor [Unknown]
  - Local swelling [Unknown]
